FAERS Safety Report 25292510 (Version 1)
Quarter: 2025Q2

REPORT INFORMATION
  Report Type: Spontaneous
  Country: US (occurrence: US)
  Receive Date: 20250510
  Receipt Date: 20250510
  Transmission Date: 20250717
  Serious: No
  Sender: SANOFI AVENTIS
  Company Number: US-SA-2025SA124847

PATIENT
  Age: 81 Year
  Sex: Male
  Weight: 92.27 kg

DRUGS (23)
  1. DUPIXENT [Suspect]
     Active Substance: DUPILUMAB
     Indication: Asthma
     Dosage: 300 MG, QOW
     Route: 058
     Dates: start: 20250219
  2. DUPIXENT [Suspect]
     Active Substance: DUPILUMAB
     Indication: Dermatitis atopic
  3. DUPIXENT [Suspect]
     Active Substance: DUPILUMAB
     Indication: Nasal polyps
  4. AQUAPHOR [Concomitant]
     Active Substance: PETROLATUM
  5. GENTAMICIN SULFATE [Concomitant]
     Active Substance: GENTAMICIN SULFATE
  6. CLOBETASOL [Concomitant]
     Active Substance: CLOBETASOL
  7. COLACE [Concomitant]
     Active Substance: DOCUSATE SODIUM
  8. Centrum adults [Concomitant]
  9. VITAMIN E [Concomitant]
     Active Substance: .ALPHA.-TOCOPHEROL
  10. VITAMIN C [Concomitant]
     Active Substance: ASCORBIC ACID
  11. VITAMIN D3 [Concomitant]
     Active Substance: CHOLECALCIFEROL
  12. FAMOTIDINE [Concomitant]
     Active Substance: FAMOTIDINE
  13. ZETIA [Concomitant]
     Active Substance: EZETIMIBE
  14. LYSINE [Concomitant]
     Active Substance: LYSINE
  15. ASPIRIN [Concomitant]
     Active Substance: ASPIRIN
  16. HYDROCHLOROTHIAZIDE [Concomitant]
     Active Substance: HYDROCHLOROTHIAZIDE
  17. SIMVASTATIN [Concomitant]
     Active Substance: SIMVASTATIN
  18. VALSARTAN [Concomitant]
     Active Substance: VALSARTAN
  19. METFORMIN HYDROCHLORIDE [Concomitant]
     Active Substance: METFORMIN HYDROCHLORIDE
  20. ZYRTEC [Concomitant]
     Active Substance: CETIRIZINE HYDROCHLORIDE
  21. MONTELUKAST SODIUM [Concomitant]
     Active Substance: MONTELUKAST SODIUM
  22. ALBUTEROL SULFATE [Concomitant]
     Active Substance: ALBUTEROL SULFATE
  23. TRELEGY ELLIPTA [Concomitant]
     Active Substance: FLUTICASONE FUROATE\UMECLIDINIUM BROMIDE\VILANTEROL TRIFENATATE

REACTIONS (4)
  - Dysphonia [Unknown]
  - Ear infection [Unknown]
  - Middle ear effusion [Unknown]
  - Incorrect dose administered [Unknown]

NARRATIVE: CASE EVENT DATE: 20250101
